FAERS Safety Report 6192014-9 (Version None)
Quarter: 2009Q2

REPORT INFORMATION
  Report Type: 
  Country: None (occurrence: None)
  Receive Date: 20090515
  Receipt Date: 20090513
  Transmission Date: 20091009
  Serious: Yes (Hospitalization)
  Sender: FDA-Public Use
  Company Number: B0573977A

PATIENT
  Sex: Male
  Weight: 47 kg

DRUGS (15)
  1. MELPHALAN [Suspect]
     Indication: MULTIPLE MYELOMA
     Dosage: .2MGK PER DAY
     Dates: start: 20090212, end: 20090215
  2. THALIDOMIDE [Suspect]
     Indication: MULTIPLE MYELOMA
     Dosage: 100MG PER DAY
     Route: 048
     Dates: start: 20090212
  3. PREDNISONE [Suspect]
     Indication: MULTIPLE MYELOMA
     Dosage: 2MGK PER DAY
     Dates: start: 20090212, end: 20090215
  4. FENOFIBRATE [Concomitant]
     Indication: DYSLIPIDAEMIA
     Dosage: 200MG PER DAY
     Route: 048
  5. AVANDIA [Concomitant]
     Indication: DIABETES MELLITUS
     Dosage: 4MG PER DAY
     Route: 048
     Dates: start: 19990101
  6. CLASTOBAN [Concomitant]
     Indication: OSTEOLYSIS
     Dosage: 800MG PER DAY
     Route: 048
     Dates: start: 20090211
  7. METHOXY POLYETHYLENE GLYCOL-EPOETIN BETA [Concomitant]
     Indication: ANAEMIA
     Route: 042
  8. KAYEXALATE [Concomitant]
     Indication: BLOOD POTASSIUM
     Dosage: 15G PER DAY
     Route: 048
  9. FUROSEMIDE [Concomitant]
  10. LERCAN [Concomitant]
     Route: 048
  11. KARDEGIC [Concomitant]
     Indication: THROMBOSIS PROPHYLAXIS
     Dosage: 75MG PER DAY
     Route: 048
  12. TAMIFLU [Concomitant]
     Route: 048
     Dates: start: 20090304, end: 20090310
  13. ARANESP [Concomitant]
     Dosage: 40UG PER DAY
     Route: 058
     Dates: start: 20090319
  14. DIFFU K [Concomitant]
  15. LOVENOX [Concomitant]

REACTIONS (11)
  - ASTHENIA [None]
  - BRONCHOPNEUMOPATHY [None]
  - DIARRHOEA [None]
  - DYSPNOEA [None]
  - FEBRILE BONE MARROW APLASIA [None]
  - PANCYTOPENIA [None]
  - PHARYNGITIS [None]
  - RALES [None]
  - RASH [None]
  - RASH MACULO-PAPULAR [None]
  - VIRAL INFECTION [None]
